FAERS Safety Report 7530167-8 (Version None)
Quarter: 2011Q2

REPORT INFORMATION
  Report Type: 
  Country: None (occurrence: None)
  Receive Date: 20110607
  Receipt Date: 20110606
  Transmission Date: 20111010
  Serious: Yes (Hospitalization, Other)
  Sender: FDA-Public Use
  Company Number: GB-AMGEN-KDC431073

PATIENT
  Age: 71 Year
  Sex: Female

DRUGS (6)
  1. PANITUMUMAB [Suspect]
     Indication: GASTROOESOPHAGEAL CANCER
     Dosage: UNK UNK, UNK
     Dates: start: 20100628
  2. CAPECITABINE [Concomitant]
     Dosage: UNK UNK, UNK
     Dates: start: 20100621
  3. NEUPOGEN [Suspect]
  4. SERTRALINE HYDROCHLORIDE [Concomitant]
     Dosage: 100 MG, QD
  5. OXALIPLATIN [Concomitant]
     Dosage: UNK UNK, UNK
     Dates: start: 20100621
  6. EPIRUBICIN [Concomitant]
     Dosage: UNK UNK, UNK
     Dates: start: 20100621

REACTIONS (6)
  - PULMONARY EMBOLISM [None]
  - TACHYCARDIA [None]
  - PYREXIA [None]
  - PLEURITIC PAIN [None]
  - URINARY TRACT INFECTION [None]
  - NEUTROPENIA [None]
